FAERS Safety Report 6653747-0 (Version None)
Quarter: 2010Q1

REPORT INFORMATION
  Report Type: 
  Country: None (occurrence: None)
  Receive Date: 20100326
  Receipt Date: 20100323
  Transmission Date: 20100710
  Serious: Yes (Other)
  Sender: FDA-Public Use
  Company Number: A0851561A

PATIENT
  Age: 67 Year
  Sex: Female

DRUGS (1)
  1. ALLI [Suspect]
     Indication: WEIGHT LOSS DIET

REACTIONS (8)
  - ABDOMINAL PAIN UPPER [None]
  - INFLUENZA [None]
  - LIVER INJURY [None]
  - NAUSEA [None]
  - PAIN [None]
  - PYREXIA [None]
  - RETCHING [None]
  - VOMITING [None]
